FAERS Safety Report 9699199 (Version 2)
Quarter: 2013Q4

REPORT INFORMATION
  Report Type: Spontaneous
  Country: US (occurrence: US)
  Receive Date: 20131120
  Receipt Date: 20131120
  Transmission Date: 20140711
  Serious: No
  Sender: FDA-Public Use
  Company Number: US-GILEAD-2008-0014930

PATIENT
  Age: 66 Year
  Sex: Female

DRUGS (18)
  1. LETAIRIS [Suspect]
     Indication: PULMONARY ARTERIAL HYPERTENSION
     Route: 048
     Dates: start: 20071014, end: 20071212
  2. SYNTHROID [Concomitant]
     Indication: HYPOTHYROIDISM
     Route: 048
  3. ZOCOR [Concomitant]
     Indication: HYPERLIPIDAEMIA
     Route: 048
  4. PLAVIX [Concomitant]
     Indication: CORONARY ARTERY DISEASE
     Route: 048
  5. INSULIN [Concomitant]
     Indication: TYPE 1 DIABETES MELLITUS
  6. NITROGLYCERIN [Concomitant]
  7. METOLAZONE [Concomitant]
  8. COLCHICINE [Concomitant]
  9. FERROUS SULFATE [Concomitant]
  10. FOLIC ACID [Concomitant]
  11. MAGNESIUM OXIDE [Concomitant]
  12. ZANTAC [Concomitant]
  13. BUMETANIDE [Concomitant]
  14. HYDRALAZINE [Concomitant]
  15. IMDUR [Concomitant]
  16. FLUOXETINE [Concomitant]
  17. ASPIRIN [Concomitant]
  18. PLAVIX [Concomitant]

REACTIONS (2)
  - Gastric disorder [Unknown]
  - Generalised oedema [Recovered/Resolved]
